FAERS Safety Report 18306663 (Version 1)
Quarter: 2020Q3

REPORT INFORMATION
  Report Type: Spontaneous
  Country: US (occurrence: US)
  Receive Date: 20200923
  Receipt Date: 20200923
  Transmission Date: 20201103
  Serious: Yes (Hospitalization)
  Sender: FDA-Public Use
  Company Number: None

PATIENT
  Age: 32 Year
  Sex: Female
  Weight: 86 kg

DRUGS (2)
  1. CLOPIDOGREL (CLOPIDOGREL BISULFATE 75MG TAB) [Suspect]
     Active Substance: CLOPIDOGREL BISULFATE
     Indication: CORONARY ARTERIAL STENT INSERTION
     Route: 048
     Dates: start: 20170915, end: 20200722
  2. WARFARIN (WARFARIN NA (EXELAN) 5MG TAB) [Suspect]
     Active Substance: WARFARIN SODIUM
     Indication: DEEP VEIN THROMBOSIS
     Dosage: ?          OTHER DOSE:7.5MG DAILY EXCEPT;?
     Route: 048
     Dates: start: 20190814

REACTIONS (6)
  - Palpitations [None]
  - Muscle spasms [None]
  - Menorrhagia [None]
  - International normalised ratio increased [None]
  - Dizziness [None]
  - Pelvic pain [None]

NARRATIVE: CASE EVENT DATE: 20200715
